FAERS Safety Report 25866527 (Version 2)
Quarter: 2025Q4

REPORT INFORMATION
  Report Type: Spontaneous
  Country: EU (occurrence: EU)
  Receive Date: 20250930
  Receipt Date: 20251020
  Transmission Date: 20260118
  Serious: Yes (Hospitalization, Other)
  Sender: SANOFI AVENTIS
  Company Number: EU-SA-2025SA290831

PATIENT
  Age: 39 Year
  Sex: Female

DRUGS (5)
  1. DUPILUMAB [Suspect]
     Active Substance: DUPILUMAB
     Indication: Asthma
     Dosage: 600 MG, 1X
     Dates: start: 20230725, end: 20230725
  2. DUPILUMAB [Suspect]
     Active Substance: DUPILUMAB
     Indication: Chronic rhinosinusitis with nasal polyps
     Dosage: 300 MG, QOW
     Dates: start: 202308
  3. MONTELUKAST [Concomitant]
     Active Substance: MONTELUKAST
  4. ESOMEPRAZOLE [Concomitant]
     Active Substance: ESOMEPRAZOLE
  5. DIENOGEST [Concomitant]
     Active Substance: DIENOGEST

REACTIONS (6)
  - Metastases to spine [Unknown]
  - Breast injury [Unknown]
  - Hospitalisation [Unknown]
  - Fibroadenoma of breast [Not Recovered/Not Resolved]
  - Accident [Unknown]
  - Neck pain [Not Recovered/Not Resolved]

NARRATIVE: CASE EVENT DATE: 20230101
